FAERS Safety Report 5526622-2 (Version None)
Quarter: 2007Q4

REPORT INFORMATION
  Report Type: 
  Country: None (occurrence: None)
  Receive Date: 20071127
  Receipt Date: 20071114
  Transmission Date: 20080405
  Serious: Yes (Disabling, Other)
  Sender: FDA-Public Use
  Company Number: ES-BRISTOL-MYERS SQUIBB COMPANY-13974951

PATIENT
  Age: 24 Year
  Sex: Male

DRUGS (1)
  1. TRIGON-DEPOT [Suspect]
     Indication: DERMATITIS
     Route: 030

REACTIONS (9)
  - ASTHENIA [None]
  - CHROMATURIA [None]
  - HEADACHE [None]
  - HYPERAESTHESIA [None]
  - MUSCULAR WEAKNESS [None]
  - NAUSEA [None]
  - PAIN OF SKIN [None]
  - SOMNOLENCE [None]
  - VOMITING [None]
